FAERS Safety Report 8533643-4 (Version None)
Quarter: 2012Q3

REPORT INFORMATION
  Report Type: 
  Country: None (occurrence: None)
  Receive Date: 20120724
  Receipt Date: 20120709
  Transmission Date: 20120928
  Serious: Yes (Other)
  Sender: FDA-Public Use
  Company Number: JP-ELI_LILLY_AND_COMPANY-JP201201004557

PATIENT
  Sex: Female
  Weight: 33 kg

DRUGS (9)
  1. NOVOLIN 30R                        /00806401/ [Concomitant]
     Indication: DIABETES MELLITUS
     Dosage: 18 U, EACH MORNING
     Route: 058
     Dates: start: 20091021
  2. LYRICA [Concomitant]
     Indication: POST HERPETIC NEURALGIA
     Dosage: 75 MG, BID
     Route: 048
     Dates: start: 20111004, end: 20111221
  3. MIGLITOL [Concomitant]
     Indication: DIABETES MELLITUS
     Dosage: 50 MG, TID
     Route: 048
     Dates: start: 20110222
  4. CEPHADOL [Concomitant]
     Indication: DIZZINESS
     Dosage: 25 MG, TID
     Route: 048
     Dates: start: 20110712, end: 20111101
  5. ACETAMINOPHEN [Concomitant]
     Indication: POST HERPETIC NEURALGIA
     Dosage: 500 MG, BID
     Route: 048
     Dates: start: 20110913, end: 20111026
  6. ZETIA [Concomitant]
     Indication: HYPERCHOLESTEROLAEMIA
     Dosage: 10 MG, QD
     Route: 048
     Dates: start: 20101006
  7. NOVOLIN 30R                        /00806401/ [Concomitant]
     Dosage: 10 U, EACH EVENING
     Route: 058
     Dates: start: 20091021
  8. SELBEX [Concomitant]
     Indication: GASTRITIS PROPHYLAXIS
     Dosage: 1 G, BID
     Route: 048
     Dates: start: 20110913, end: 20111026
  9. CYMBALTA [Suspect]
     Indication: POST HERPETIC NEURALGIA
     Dosage: 20 MG, QD
     Route: 048
     Dates: start: 20111019, end: 20111020

REACTIONS (3)
  - LOSS OF CONSCIOUSNESS [None]
  - SYNCOPE [None]
  - OFF LABEL USE [None]
